FAERS Safety Report 24388117 (Version 2)
Quarter: 2024Q4

REPORT INFORMATION
  Report Type: Spontaneous
  Country: US (occurrence: US)
  Receive Date: 20241002
  Receipt Date: 20241004
  Transmission Date: 20250115
  Serious: No
  Sender: BAYER
  Company Number: US-BAYER-2024A137659

PATIENT
  Sex: Female

DRUGS (1)
  1. MIRENA [Suspect]
     Active Substance: LEVONORGESTREL
     Dosage: 20?G/DAY
     Route: 015

REACTIONS (5)
  - Nausea [None]
  - Abdominal pain lower [None]
  - Genital haemorrhage [None]
  - Decreased appetite [None]
  - Suspected counterfeit product [None]
